FAERS Safety Report 10200368 (Version 4)
Quarter: 2014Q4

REPORT INFORMATION
  Report Type: Spontaneous
  Country: BR (occurrence: BR)
  Receive Date: 20140528
  Receipt Date: 20141224
  Transmission Date: 20150528
  Serious: Yes (Other)
  Sender: FDA-Public Use
  Company Number: BR-PFIZER INC-2014119116

PATIENT
  Age: 77 Year
  Sex: Female
  Weight: 58 kg

DRUGS (7)
  1. CHAMPIX [Suspect]
     Active Substance: VARENICLINE TARTRATE
     Indication: SMOKING CESSATION THERAPY
     Dosage: ONE BLUE TABLET (1 MG), 1X/DAY
     Route: 048
     Dates: start: 20140216, end: 20140223
  2. AMLODIPINE [Concomitant]
     Active Substance: AMLODIPINE BESYLATE
     Indication: BLOOD PRESSURE INCREASED
     Dosage: ONE TABLET (UNSPECIFIED DOSE); DAILY
     Dates: start: 2011
  3. ATORVASTATIN CALCIUM. [Concomitant]
     Active Substance: ATORVASTATIN CALCIUM
     Dosage: STRENGTH 10 MG, HALF DAILY
     Dates: start: 201310
  4. CHAMPIX [Suspect]
     Active Substance: VARENICLINE TARTRATE
     Dosage: ONE WHITE TABLET (0.5 MG), 2X/DAY (IN THE MORNING AND AT NIGHT)
     Route: 048
     Dates: start: 20140219, end: 20140301
  5. ATORVASTATIN CALCIUM. [Concomitant]
     Active Substance: ATORVASTATIN CALCIUM
     Indication: BLOOD PRESSURE INCREASED
     Dosage: 1 DF, 1X/DAY
     Route: 048
     Dates: start: 2011
  6. LOSARTAN POTASSIUM. [Concomitant]
     Active Substance: LOSARTAN POTASSIUM
     Indication: BLOOD PRESSURE INCREASED
     Dosage: 1 TABLET (UNSPECIFIED DOSE), DAILY
     Dates: start: 2011
  7. CHAMPIX [Suspect]
     Active Substance: VARENICLINE TARTRATE
     Dosage: ONE WHITE TABLET (0.5 MG), 2X/DAY
     Route: 048
     Dates: start: 20140516, end: 20140517

REACTIONS (14)
  - Disorientation [Recovering/Resolving]
  - Blood pressure increased [Recovered/Resolved]
  - Insomnia [Unknown]
  - Weight increased [Unknown]
  - Feeling abnormal [Recovered/Resolved]
  - Nocturia [Unknown]
  - Fall [Recovering/Resolving]
  - Abdominal pain upper [Unknown]
  - Retching [Recovered/Resolved]
  - Dizziness [Not Recovered/Not Resolved]
  - Walking disability [Recovered/Resolved]
  - Polyuria [Unknown]
  - Head discomfort [Recovered/Resolved]
  - Labyrinthitis [Unknown]

NARRATIVE: CASE EVENT DATE: 2014
